FAERS Safety Report 4465884-X (Version None)
Quarter: 2004Q4

REPORT INFORMATION
  Report Type: 
  Country: None (occurrence: None)
  Receive Date: 20041001
  Receipt Date: 20041001
  Transmission Date: 20050328
  Serious: Yes (Other)
  Sender: FDA-Public Use
  Company Number: None

PATIENT
  Sex: Female
  Weight: 74.4 kg

DRUGS (5)
  1. FLUDARABINE PHOSPHATE [Suspect]
     Dosage: 51 MG IV X 5 DOSES
     Route: 042
     Dates: start: 20031202, end: 20040929
  2. BUSULFAN [Suspect]
     Dosage: 51 MG IV X 8 DOSES
     Route: 042
     Dates: start: 20031202, end: 20040929
  3. BECLOMETHASONE DIPROPIONATE [Concomitant]
  4. DIGOXIN [Concomitant]
  5. METHYLPREDNISOLONE [Concomitant]

REACTIONS (4)
  - CYSTITIS HAEMORRHAGIC [None]
  - DYSPNOEA [None]
  - DYSURIA [None]
  - RESPIRATORY ARREST [None]
